FAERS Safety Report 8328004-7 (Version None)
Quarter: 2012Q2

REPORT INFORMATION
  Report Type: 
  Country: None (occurrence: None)
  Receive Date: 20120502
  Receipt Date: 20120425
  Transmission Date: 20120825
  Serious: Yes (Death, Other)
  Sender: FDA-Public Use
  Company Number: US-PURDUE-USA-2012-0085826

PATIENT

DRUGS (2)
  1. OXYCONTIN [Suspect]
     Indication: SURGERY
     Dosage: 10 MG, SEE TEXT
     Route: 064
     Dates: start: 20120101
  2. OXYCONTIN [Suspect]
     Dosage: 120 MG, Q12H
     Route: 064
     Dates: start: 20120101

REACTIONS (4)
  - FOETAL DEATH [None]
  - FOETAL EXPOSURE DURING PREGNANCY [None]
  - FOETAL CHROMOSOME ABNORMALITY [None]
  - CARDIAC ARREST [None]
